FAERS Safety Report 18762756 (Version 1)
Quarter: 2021Q1

REPORT INFORMATION
  Report Type: Spontaneous
  Country: US (occurrence: US)
  Receive Date: 20210120
  Receipt Date: 20210120
  Transmission Date: 20210419
  Serious: Yes (Other)
  Sender: FDA-Public Use
  Company Number: None

PATIENT
  Age: 84 Year
  Sex: Male
  Weight: 90.8 kg

DRUGS (2)
  1. REMDESIVIR. [Suspect]
     Active Substance: REMDESIVIR
     Indication: COVID-19 PNEUMONIA
     Dates: start: 20210101, end: 20210104
  2. IV CONTRAST [Concomitant]
     Active Substance: UNSPECIFIED INGREDIENT
     Dates: start: 20201231

REACTIONS (3)
  - Blood creatinine increased [None]
  - Dialysis [None]
  - Contrast media reaction [None]

NARRATIVE: CASE EVENT DATE: 20210105
